FAERS Safety Report 10175029 (Version 1)
Quarter: 2014Q2

REPORT INFORMATION
  Report Type: Spontaneous
  Country: CN (occurrence: CN)
  Receive Date: 20140515
  Receipt Date: 20140515
  Transmission Date: 20141212
  Serious: Yes (Hospitalization)
  Sender: FDA-Public Use
  Company Number: PHHY2014CN058298

PATIENT
  Age: 2 Year
  Sex: Female

DRUGS (1)
  1. CEFTRIAXONE [Suspect]
     Dosage: 84.7 MG/KG, PER DAY

REACTIONS (6)
  - Postrenal failure [Recovered/Resolved]
  - Anuria [Recovered/Resolved]
  - Flank pain [Recovered/Resolved]
  - Crying [Recovered/Resolved]
  - Blood creatinine increased [Recovered/Resolved]
  - Blood urea increased [Recovered/Resolved]
